FAERS Safety Report 10161693 (Version 1)
Quarter: 2014Q2

REPORT INFORMATION
  Report Type: Spontaneous
  Country: US (occurrence: None)
  Receive Date: 20140508
  Receipt Date: 20140508
  Transmission Date: 20141212
  Serious: Yes (Other)
  Sender: FDA-Public Use
  Company Number: None

PATIENT
  Age: 39 Year
  Sex: Male

DRUGS (2)
  1. LAMOTRIGINE [Suspect]
     Indication: AFFECTIVE DISORDER
     Dosage: 1 PILL QD ORAL
     Route: 048
     Dates: start: 20130523, end: 20130623
  2. VYVANSE [Concomitant]

REACTIONS (2)
  - No therapeutic response [None]
  - Product substitution issue [None]
